FAERS Safety Report 6330356-4 (Version None)
Quarter: 2009Q3

REPORT INFORMATION
  Report Type: 
  Country: None (occurrence: None)
  Receive Date: 20090826
  Receipt Date: 20090826
  Transmission Date: 20100115
  Serious: Yes (Disabling)
  Sender: FDA-Public Use
  Company Number: None

PATIENT
  Age: 47 Year
  Sex: Female

DRUGS (1)
  1. ISONIAZID [Suspect]

REACTIONS (4)
  - ABDOMINAL PAIN UPPER [None]
  - FAECES PALE [None]
  - HEPATITIS A [None]
  - PRURITUS [None]
